FAERS Safety Report 7495907-5 (Version None)
Quarter: 2011Q2

REPORT INFORMATION
  Report Type: 
  Country: None (occurrence: None)
  Receive Date: 20110523
  Receipt Date: 20110504
  Transmission Date: 20111010
  Serious: No
  Sender: FDA-Public Use
  Company Number: US-B.I. PHARMACEUTICALS,INC./RIDGEFIELD-2011-BP-10191BP

PATIENT
  Age: 82 Year
  Sex: Male

DRUGS (6)
  1. DIGOXIN [Concomitant]
     Dosage: 12.5 MCG
  2. DULERA TABLET [Concomitant]
     Indication: LUNG DISORDER
  3. PRADAXA [Suspect]
     Dosage: 300 MG
     Route: 048
     Dates: start: 20110401, end: 20110405
  4. NATTO [Concomitant]
  5. HYDROCHLOROTHIAZIDE [Concomitant]
     Dosage: 12.5 MG
  6. ADVAIR DISKUS 100/50 [Concomitant]
     Indication: LUNG DISORDER

REACTIONS (4)
  - RASH [None]
  - HAEMOPTYSIS [None]
  - DYSPNOEA [None]
  - DIARRHOEA [None]
